FAERS Safety Report 15288782 (Version 2)
Quarter: 2019Q2

REPORT INFORMATION
  Report Type: Spontaneous
  Country: CA (occurrence: CA)
  Receive Date: 20180817
  Receipt Date: 20190411
  Transmission Date: 20190711
  Serious: Yes (Life-Threatening, Hospitalization)
  Sender: FDA-Public Use
  Company Number: CA-HLSUS-2018-CA-001209

PATIENT
  Age: 26 Year
  Sex: Female

DRUGS (11)
  1. BENZTROPINE. [Concomitant]
     Active Substance: BENZTROPINE
  2. QUETIAPINE. [Concomitant]
     Active Substance: QUETIAPINE
  3. TRUVADA [Concomitant]
     Active Substance: EMTRICITABINE\TENOFOVIR DISOPROXIL FUMARATE
  4. GABAPENTIN. [Concomitant]
     Active Substance: GABAPENTIN
  5. GINGER ROOT [Concomitant]
     Active Substance: GINGER
  6. CLOZARIL [Suspect]
     Active Substance: CLOZAPINE
     Indication: SCHIZOPHRENIA
     Dosage: 12.5 MG QHS
     Route: 048
     Dates: start: 20171023, end: 20171101
  7. SALBUTAMOL [Concomitant]
     Active Substance: ALBUTEROL
  8. ACETAMINOPHEN. [Concomitant]
     Active Substance: ACETAMINOPHEN
  9. LORAZEPAM. [Concomitant]
     Active Substance: LORAZEPAM
  10. LATUDA [Concomitant]
     Active Substance: LURASIDONE HYDROCHLORIDE
  11. MAGNESIUM GLUCONATE [Concomitant]
     Active Substance: MAGNESIUM GLUCONATE

REACTIONS (9)
  - Posture abnormal [Recovered/Resolved]
  - Myalgia [Recovered/Resolved]
  - Myocarditis [Recovered/Resolved]
  - Pyrexia [Recovered/Resolved]
  - Asthenia [Recovered/Resolved]
  - Chest pain [Recovered/Resolved]
  - Confusional state [Recovered/Resolved]
  - Depressed level of consciousness [Recovered/Resolved]
  - Influenza like illness [Recovered/Resolved]

NARRATIVE: CASE EVENT DATE: 20171103
